FAERS Safety Report 18455293 (Version 1)
Quarter: 2020Q4

REPORT INFORMATION
  Report Type: Report from Study
  Country: IT (occurrence: IT)
  Receive Date: 20201102
  Receipt Date: 20201102
  Transmission Date: 20210114
  Serious: Yes (Death, Other)
  Sender: FDA-Public Use
  Company Number: IT-TAKEDA-2020TUS046452

PATIENT

DRUGS (7)
  1. BORTEZOMIB. [Suspect]
     Active Substance: BORTEZOMIB
     Indication: PLASMA CELL MYELOMA
     Dosage: UNK
     Route: 042
  2. DOXORUBICIN HYDROCHLORIDE. [Suspect]
     Active Substance: DOXORUBICIN HYDROCHLORIDE
     Indication: PLASMA CELL MYELOMA
     Dosage: UNK
     Route: 065
  3. VINCRISTINE [Suspect]
     Active Substance: VINCRISTINE
     Indication: PLASMA CELL MYELOMA
     Dosage: UNK
     Route: 065
  4. CYCLOPHOSPHAMIDE. [Suspect]
     Active Substance: CYCLOPHOSPHAMIDE
     Indication: PLASMA CELL MYELOMA
     Dosage: UNK
     Route: 065
  5. MELPHALAN. [Suspect]
     Active Substance: MELPHALAN
     Indication: PLASMA CELL MYELOMA
     Dosage: UNK
     Route: 065
  6. LENALIDOMIDE [Suspect]
     Active Substance: LENALIDOMIDE
     Indication: PLASMA CELL MYELOMA
     Dosage: UNK
     Route: 065
  7. THALIDOMIDE [Suspect]
     Active Substance: THALIDOMIDE
     Indication: PLASMA CELL MYELOMA
     Dosage: UNK
     Route: 065

REACTIONS (19)
  - Neuropathy peripheral [Unknown]
  - Pyrexia [Unknown]
  - Haemorrhage [Unknown]
  - Neutropenia [Unknown]
  - Pneumonia [Unknown]
  - Anaemia [Unknown]
  - Constipation [Unknown]
  - Diarrhoea [Unknown]
  - Renal failure [Unknown]
  - Adverse event [Fatal]
  - Embolism venous [Unknown]
  - Infection [Unknown]
  - Leukopenia [Unknown]
  - Rash [Unknown]
  - Cardiac failure [Unknown]
  - Asthenia [Unknown]
  - Arrhythmia [Unknown]
  - Thrombocytopenia [Unknown]
  - Fatigue [Unknown]
